FAERS Safety Report 23048770 (Version 1)
Quarter: 2023Q4

REPORT INFORMATION
  Report Type: Spontaneous
  Country: PL (occurrence: PL)
  Receive Date: 20231010
  Receipt Date: 20231010
  Transmission Date: 20240110
  Serious: Yes (Other)
  Sender: FDA-Public Use
  Company Number: PL-AMGEN-POLSP2023176245

PATIENT
  Age: 6 Year
  Sex: Male

DRUGS (11)
  1. FILGRASTIM [Suspect]
     Active Substance: FILGRASTIM
     Indication: Prophylaxis
     Dosage: UNK
     Route: 065
  2. CYTARABINE [Concomitant]
     Active Substance: CYTARABINE
  3. IDARUBICIN [Concomitant]
     Active Substance: IDARUBICIN
  4. ETOPOSIDE [Concomitant]
     Active Substance: ETOPOSIDE
  5. MITOXANTRONE [Concomitant]
     Active Substance: MITOXANTRONE HYDROCHLORIDE
  6. FLUDARABINE [Concomitant]
     Active Substance: FLUDARABINE PHOSPHATE
  7. BUSULFAN [Concomitant]
     Active Substance: BUSULFAN
  8. CYCLOPHOSPHAMIDE [Concomitant]
     Active Substance: CYCLOPHOSPHAMIDE
  9. THYMOGLOBULIN [Concomitant]
     Active Substance: LAPINE T-LYMPHOCYTE IMMUNE GLOBULIN
  10. CYCLOSPORINE [Concomitant]
     Active Substance: CYCLOSPORINE
  11. METHOTREXATE [Concomitant]
     Active Substance: METHOTREXATE

REACTIONS (7)
  - Bone marrow failure [Recovered/Resolved]
  - Clostridium difficile colitis [Recovered/Resolved]
  - Candida infection [Recovered/Resolved]
  - Klebsiella infection [Recovered/Resolved]
  - Escherichia bacteraemia [Recovered/Resolved]
  - Transaminases increased [Recovered/Resolved]
  - Stomatitis [Recovered/Resolved]
